FAERS Safety Report 8101210-2 (Version None)
Quarter: 2012Q1

REPORT INFORMATION
  Report Type: 
  Country: None (occurrence: None)
  Receive Date: 20120129
  Receipt Date: 20111013
  Transmission Date: 20120608
  Serious: No
  Sender: FDA-Public Use
  Company Number: US-ABBOTT-11P-163-0864124-00

PATIENT
  Age: 61 Year
  Sex: Female

DRUGS (14)
  1. PROMETHAZINE [Concomitant]
     Indication: MIGRAINE
  2. METFORMIN HCL [Concomitant]
     Indication: DIABETES MELLITUS
     Dosage: DAILY
  3. HUMIRA [Suspect]
     Indication: ANKYLOSING SPONDYLITIS
     Dates: start: 20110904
  4. AMLODIPINE [Concomitant]
     Indication: BLOOD PRESSURE
  5. PROGESTERONE [Concomitant]
     Indication: PRODUCT USED FOR UNKNOWN INDICATION
     Dosage: DAILY
  6. FOLIC ACID [Concomitant]
     Indication: PRODUCT USED FOR UNKNOWN INDICATION
     Dosage: DAILY
  7. ESTROGEL [Concomitant]
     Indication: PRODUCT USED FOR UNKNOWN INDICATION
  8. VALACYCLOVIR [Concomitant]
     Indication: ORAL HERPES
  9. BENADRYL [Concomitant]
     Indication: MIGRAINE
  10. GABAPENTIN [Concomitant]
     Indication: TREMOR
     Dosage: AT NOC
  11. POTASSIUM [Concomitant]
     Indication: SUPPLEMENTATION THERAPY
     Dosage: CR 10 DAILY
  12. ATENOLOL [Concomitant]
     Indication: BLOOD PRESSURE
     Dosage: 1 1/2 TABLETS IN THE MORNING + AT NIGHT
  13. HYDROCODONE BITARTRATE [Concomitant]
     Indication: ARTHRALGIA
     Dosage: 7.5/500
  14. LASIX [Concomitant]
     Indication: BLOOD PRESSURE
     Dosage: DAILY

REACTIONS (3)
  - CONTUSION [None]
  - INJECTION SITE PAIN [None]
  - INFLUENZA LIKE ILLNESS [None]
